FAERS Safety Report 23336007 (Version 3)
Quarter: 2024Q1

REPORT INFORMATION
  Report Type: Spontaneous
  Country: DE (occurrence: DE)
  Receive Date: 20231225
  Receipt Date: 20240122
  Transmission Date: 20240409
  Serious: Yes (Death, Life-Threatening, Hospitalization, Disabling, Other)
  Sender: FDA-Public Use
  Company Number: DE-OPELLA-2023OHG017129

PATIENT
  Age: 80 Year
  Sex: Male
  Weight: 69 kg

DRUGS (9)
  1. DULCOLAX STIMULANT LAXATIVE [Suspect]
     Active Substance: BISACODYL
     Indication: Constipation
     Dosage: DOSE DESCRIPTION : 10 MG, QD
     Route: 054
  2. DULCOLAX STIMULANT LAXATIVE [Suspect]
     Active Substance: BISACODYL
     Dosage: DOSE DESCRIPTION : 10 MG, PRN
     Route: 054
  3. DULCOLAX STIMULANT LAXATIVE [Suspect]
     Active Substance: BISACODYL
     Dosage: DOSE DESCRIPTION : 10 MG, PRN
     Route: 054
  4. DULCOLAX STIMULANT LAXATIVE [Suspect]
     Active Substance: BISACODYL
     Dosage: DOSE DESCRIPTION : 10 MG, PRN
     Route: 054
  5. DULCOLAX STIMULANT LAXATIVE [Suspect]
     Active Substance: BISACODYL
     Dosage: DOSE DESCRIPTION : 10 MG, PRN
     Route: 054
  6. DULCOLAX STIMULANT LAXATIVE [Suspect]
     Active Substance: BISACODYL
     Dosage: DOSE DESCRIPTION : 10 MG, PRN
     Route: 065
  7. DULCOLAX STIMULANT LAXATIVE [Suspect]
     Active Substance: BISACODYL
     Route: 054
  8. DULCOLAX STIMULANT LAXATIVE [Suspect]
     Active Substance: BISACODYL
     Route: 054
  9. DULCOLAX STIMULANT LAXATIVE [Suspect]
     Active Substance: BISACODYL
     Dosage: DOSE DESCRIPTION : 10 MG
     Route: 054

REACTIONS (1)
  - Cardiogenic shock [Fatal]
